FAERS Safety Report 7636178-6 (Version None)
Quarter: 2011Q3

REPORT INFORMATION
  Report Type: 
  Country: None (occurrence: None)
  Receive Date: 20110726
  Receipt Date: 20110721
  Transmission Date: 20111222
  Serious: Yes (Life-Threatening, Hospitalization)
  Sender: FDA-Public Use
  Company Number: JP-PFIZER INC-2011165337

PATIENT
  Age: 62 Year
  Sex: Male
  Weight: 63 kg

DRUGS (9)
  1. DECADRON [Concomitant]
     Dosage: 0.5 MG, 1X/DAY
     Route: 048
     Dates: start: 20090613, end: 20100114
  2. SUNITINIB MALATE [Suspect]
     Indication: METASTATIC RENAL CELL CARCINOMA
     Dosage: 25 MG, 1X/DAY
     Route: 048
     Dates: start: 20090503, end: 20100513
  3. BIOFERMIN [Concomitant]
     Dosage: 1 G, 3X/DAY
     Route: 048
     Dates: start: 20100420, end: 20100528
  4. LASIX [Concomitant]
     Dosage: 40 MG, 1X/DAY
     Route: 048
     Dates: start: 20100508, end: 20100611
  5. ASVERIN [Concomitant]
     Indication: RENAL CELL CARCINOMA
     Dosage: 20 MG, 3X/DAY
     Route: 048
  6. ETODOLAC [Concomitant]
     Indication: RENAL CELL CARCINOMA
     Dosage: 200 MG, 2X/DAY
     Route: 048
     Dates: start: 20100420, end: 20100526
  7. DECADRON [Concomitant]
     Dosage: 2 MG, UNK
     Route: 048
     Dates: start: 20100210
  8. CODEINE PHOSPHATE [Concomitant]
     Indication: RENAL CELL CARCINOMA
     Dosage: 20 MG, 3X/DAY
     Route: 048
     Dates: start: 20100409, end: 20100531
  9. IMUNACE [Concomitant]
     Dosage: 70 IU, 1X/DAY
     Route: 042
     Dates: start: 20100515, end: 20100515

REACTIONS (1)
  - PLEURAL EFFUSION [None]
